FAERS Safety Report 9529263 (Version 1)
Quarter: 2013Q1

REPORT INFORMATION
  Report Type: Spontaneous
  Country: US (occurrence: None)
  Receive Date: 20130318
  Receipt Date: 20130318
  Transmission Date: 20140127
  Serious: Yes (Hospitalization, Other)
  Sender: FDA-Public Use
  Company Number: 1210USA002234

PATIENT
  Age: 41 Year
  Sex: Male

DRUGS (3)
  1. PEG-INTRON (PEGINTERFERON ALFA-2B) POWDER FOR INJECTION [Suspect]
     Indication: HEPATITIS C
     Dates: start: 20010105, end: 20011207
  2. REBETOL (RIBAVIRIN) CAPSULE [Suspect]
     Indication: HEPATITIS C
     Dates: start: 20010105, end: 20011207
  3. TELAPREVIR (TELAPREVIR) [Suspect]
     Dates: start: 20120925

REACTIONS (3)
  - Myocardial infarction [None]
  - Drug effect incomplete [None]
  - Fatigue [None]
